FAERS Safety Report 13345996 (Version 1)
Quarter: 2017Q1

REPORT INFORMATION
  Report Type: Spontaneous
  Country: US (occurrence: US)
  Receive Date: 20170317
  Receipt Date: 20170317
  Transmission Date: 20170428
  Serious: Yes (Death, Hospitalization)
  Sender: FDA-Public Use
  Company Number: US-JNJFOC-20170316441

PATIENT
  Age: 37 Year
  Sex: Female

DRUGS (1)
  1. YONDELIS [Suspect]
     Active Substance: TRABECTEDIN
     Indication: LEIOMYOSARCOMA
     Route: 042
     Dates: start: 20170307

REACTIONS (6)
  - Neutropenia [Unknown]
  - Renal impairment [Unknown]
  - Fatigue [Unknown]
  - Blood creatine phosphokinase increased [Unknown]
  - Death [Fatal]
  - Hepatic enzyme increased [Unknown]

NARRATIVE: CASE EVENT DATE: 201703
